FAERS Safety Report 9706286 (Version 1)
Quarter: 2013Q4

REPORT INFORMATION
  Report Type: Spontaneous
  Country: US (occurrence: US)
  Receive Date: 20131125
  Receipt Date: 20131125
  Transmission Date: 20140711
  Serious: No
  Sender: FDA-Public Use
  Company Number: 2006BI001509

PATIENT
  Sex: Male
  Weight: 95 kg

DRUGS (3)
  1. AVONEX [Suspect]
     Indication: MULTIPLE SCLEROSIS
     Route: 030
  2. AVONEX [Suspect]
     Indication: MULTIPLE SCLEROSIS
     Route: 030
     Dates: start: 20010601
  3. AVONEX [Suspect]
     Indication: MULTIPLE SCLEROSIS
     Route: 030

REACTIONS (4)
  - Nasopharyngitis [Not Recovered/Not Resolved]
  - Injection site scar [Not Recovered/Not Resolved]
  - General symptom [Not Recovered/Not Resolved]
  - Influenza like illness [Recovered/Resolved]
